FAERS Safety Report 11584322 (Version 3)
Quarter: 2018Q1

REPORT INFORMATION
  Report Type: Spontaneous
  Country: FR (occurrence: FR)
  Receive Date: 20151001
  Receipt Date: 20180205
  Transmission Date: 20180508
  Serious: Yes (Death)
  Sender: FDA-Public Use
  Company Number: FR-JNJFOC-20150919594

PATIENT
  Age: 1 Month
  Sex: Female
  Weight: 2.75 kg

DRUGS (22)
  1. MACROGOL [Suspect]
     Active Substance: POLYETHYLENE GLYCOLS
     Indication: CONSTIPATION
     Route: 064
     Dates: start: 20140716
  2. NECYRANE [Suspect]
     Active Substance: RITIOMETAN
     Indication: NASOPHARYNGITIS
     Route: 064
     Dates: start: 20140825, end: 20150105
  3. CARBOCISTEINE BIOGARAN [Suspect]
     Active Substance: CARBOCYSTEINE
     Indication: BRONCHITIS
     Dosage: 5%
     Route: 064
     Dates: start: 20141212, end: 20141216
  4. ANAFRANIL [Suspect]
     Active Substance: CLOMIPRAMINE HYDROCHLORIDE
     Indication: DEPRESSION
     Route: 064
     Dates: end: 20150105
  5. BROMAZEPAM ARROW [Suspect]
     Active Substance: BROMAZEPAM
     Indication: ANXIETY
     Dosage: 1 AND HALF PER DAY
     Route: 064
     Dates: end: 20150105
  6. VOGALENE [Suspect]
     Active Substance: METOPIMAZINE
     Indication: NAUSEA
     Route: 064
     Dates: start: 20140920
  7. SPASFON LYOC [Suspect]
     Active Substance: PHLOROGLUCINOL
     Indication: DYSPEPSIA
     Route: 064
     Dates: start: 201406, end: 201407
  8. UVESTEROL D [Suspect]
     Active Substance: ERGOCALCIFEROL
     Indication: PROPHYLAXIS
     Dosage: 1500 IU/ML
     Route: 064
     Dates: end: 20150105
  9. PARACETAMOL ARROW [Concomitant]
     Active Substance: ACETAMINOPHEN
     Route: 065
  10. IMODIUM [Suspect]
     Active Substance: LOPERAMIDE HYDROCHLORIDE
     Indication: DIARRHOEA
     Route: 064
     Dates: start: 20141212, end: 20150105
  11. VOGALENE [Suspect]
     Active Substance: METOPIMAZINE
     Indication: NAUSEA
     Route: 064
     Dates: start: 201406, end: 201409
  12. AMOXICILLIN. [Suspect]
     Active Substance: AMOXICILLIN
     Indication: ASTHMA
     Dosage: (2 COURSES IN AUG-2014 AND DEC-2014)
     Route: 064
     Dates: start: 20140827
  13. PIVALONE (TIXOCORTOL) [Suspect]
     Active Substance: TIXOCORTOL PIVALATE
     Indication: RHINITIS
     Dosage: 1%
     Route: 064
     Dates: start: 20141212, end: 20150105
  14. CODEINE [Suspect]
     Active Substance: CODEINE
     Indication: SPINAL PAIN
     Dosage: 600 MG/50 MG
     Route: 064
     Dates: start: 20140203, end: 20150104
  15. MACROGOL [Suspect]
     Active Substance: POLYETHYLENE GLYCOLS
     Indication: CONSTIPATION
     Route: 064
     Dates: start: 201406
  16. ACETYLCYSTEINE. [Suspect]
     Active Substance: ACETYLCYSTEINE
     Indication: BRONCHITIS
     Route: 064
     Dates: start: 20140825, end: 20150105
  17. KETOPROFEN. [Suspect]
     Active Substance: KETOPROFEN
     Indication: SPINAL PAIN
     Route: 064
     Dates: start: 201401, end: 201404
  18. SERETIDE [Suspect]
     Active Substance: FLUTICASONE PROPIONATE\SALMETEROL XINAFOATE
     Indication: ASTHMA
     Dosage: 100/50 MCG
     Route: 064
     Dates: start: 20140825, end: 20150105
  19. AMOXICILLIN. [Suspect]
     Active Substance: AMOXICILLIN
     Indication: ASTHMA
     Route: 064
     Dates: start: 201412
  20. OMEPRAZOLE. [Suspect]
     Active Substance: OMEPRAZOLE
     Indication: GASTROOESOPHAGEAL REFLUX DISEASE
     Route: 064
     Dates: start: 20140920, end: 20150105
  21. TIXOCORTOL PIVALATE [Suspect]
     Active Substance: TIXOCORTOL PIVALATE
     Indication: PRODUCT USED FOR UNKNOWN INDICATION
     Route: 065
  22. FUNGIZONE [Concomitant]
     Active Substance: AMPHOTERICIN B
     Indication: FUNGAL INFECTION
     Route: 065
     Dates: start: 20150126

REACTIONS (2)
  - Foetal exposure during pregnancy [Recovered/Resolved]
  - Death [Fatal]

NARRATIVE: CASE EVENT DATE: 20150303
